FAERS Safety Report 8063929-1 (Version None)
Quarter: 2012Q1

REPORT INFORMATION
  Report Type: 
  Country: None (occurrence: None)
  Receive Date: 20120123
  Receipt Date: 20120116
  Transmission Date: 20120608
  Serious: Yes (Other)
  Sender: FDA-Public Use
  Company Number: US-TEVA-318196USA

PATIENT
  Age: 20 Year
  Sex: Male

DRUGS (2)
  1. RISPERIDONE [Suspect]
     Indication: MENTAL RETARDATION
     Dosage: 0.25 MG AM, 1 MG PM
  2. FINGOLIMOD [Interacting]

REACTIONS (6)
  - NAUSEA [None]
  - CONVULSION [None]
  - MALAISE [None]
  - CARDIAC ARREST [None]
  - DRUG INTERACTION [None]
  - UNRESPONSIVE TO STIMULI [None]
